FAERS Safety Report 9233988 (Version 1)
Quarter: 2013Q2

REPORT INFORMATION
  Report Type: Spontaneous
  Country: US (occurrence: US)
  Receive Date: 20130416
  Receipt Date: 20130416
  Transmission Date: 20140414
  Serious: No
  Sender: FDA-Public Use
  Company Number: US-BANPHARM-20130573

PATIENT
  Sex: Female

DRUGS (1)
  1. ALEVE LIQUID GELS 220MG [Suspect]
     Indication: ARTHRALGIA
     Route: 048

REACTIONS (1)
  - Drug ineffective [Unknown]
